FAERS Safety Report 8611115-6 (Version None)
Quarter: 2012Q3

REPORT INFORMATION
  Report Type: 
  Country: None (occurrence: None)
  Receive Date: 20120423
  Receipt Date: 20100609
  Transmission Date: 20120928
  Serious: Yes (Hospitalization)
  Sender: FDA-Public Use
  Company Number: PHEH2010US02779

PATIENT
  Sex: Male

DRUGS (11)
  1. NORVASC [Concomitant]
  2. EXJADE [Suspect]
     Indication: IRON OVERLOAD
     Dosage: 2500MG DAILY ORAL, ORAL
     Route: 048
     Dates: start: 20091013
  3. CLARITIN [Concomitant]
  4. NEXIUM [Concomitant]
  5. ADVAIR HFA [Concomitant]
  6. PERCOCET [Concomitant]
  7. OXYCODONE HCL [Concomitant]
  8. MORPHINE [Concomitant]
  9. ALBUTEROL [Concomitant]
  10. METHADONE HYDROCHLORIDE [Concomitant]
  11. HYDROXYUREA [Concomitant]

REACTIONS (3)
  - INFECTION [None]
  - PAIN [None]
  - SICKLE CELL ANAEMIA WITH CRISIS [None]
